FAERS Safety Report 25069345 (Version 1)
Quarter: 2025Q1

REPORT INFORMATION
  Report Type: Spontaneous
  Country: US (occurrence: US)
  Receive Date: 20250312
  Receipt Date: 20250312
  Transmission Date: 20250408
  Serious: Yes (Hospitalization)
  Sender: IMPEL NEUROPHARMA
  Company Number: US-IMPEL-2025-US-011597

PATIENT
  Age: 54 Year
  Sex: Female
  Weight: 113.4 kg

DRUGS (13)
  1. GABAPENTIN [Concomitant]
     Active Substance: GABAPENTIN
  2. PROPRANOLOL [Concomitant]
     Active Substance: PROPRANOLOL HYDROCHLORIDE
  3. TRAZODONE [Concomitant]
     Active Substance: TRAZODONE HYDROCHLORIDE
  4. METHOCARBAMOL [Concomitant]
     Active Substance: METHOCARBAMOL
  5. BOTOX [Concomitant]
     Active Substance: ONABOTULINUMTOXINA
  6. VYEPTI [Concomitant]
     Active Substance: EPTINEZUMAB-JJMR
  7. several unspecified over-the-counter medications [Concomitant]
  8. NURTEC ODT [Suspect]
     Active Substance: RIMEGEPANT SULFATE
  9. REYVOW [Suspect]
     Active Substance: LASMIDITAN
  10. MORPHINE [Concomitant]
     Active Substance: MORPHINE
  11. PEPCID [Concomitant]
     Active Substance: FAMOTIDINE
  12. ACETAZOLAMIDE [Concomitant]
     Active Substance: ACETAZOLAMIDE
  13. TRUDHESA [Suspect]
     Active Substance: DIHYDROERGOTAMINE MESYLATE
     Indication: Migraine
     Route: 045
     Dates: start: 202109

REACTIONS (5)
  - Drug ineffective [Recovered/Resolved]
  - Migraine [Recovered/Resolved]
  - Medication overuse headache [Recovered/Resolved]
  - Hallucination [Recovered/Resolved]
  - Renal impairment [Recovered/Resolved]

NARRATIVE: CASE EVENT DATE: 20241231
